FAERS Safety Report 21578791 (Version 1)
Quarter: 2022Q4

REPORT INFORMATION
  Report Type: Report from Study
  Country: GB (occurrence: None)
  Receive Date: 20221110
  Receipt Date: 20221110
  Transmission Date: 20230113
  Serious: Yes (Other)
  Sender: FDA-Public Use
  Company Number: GB-Merck Healthcare KGaA-9363498

PATIENT
  Age: 28 Year
  Sex: Female

DRUGS (1)
  1. MAVENCLAD [Suspect]
     Active Substance: CLADRIBINE
     Indication: Multiple sclerosis
     Dosage: YEAR ONE WEEK ONE THERAPY; AS 2 TABLET ON DAYS 1 TO 5.
     Route: 048
     Dates: start: 20221031

REACTIONS (3)
  - Lumbar puncture [Unknown]
  - Procedural headache [Recovering/Resolving]
  - Nausea [Recovering/Resolving]

NARRATIVE: CASE EVENT DATE: 20221031
